FAERS Safety Report 17151146 (Version 2)
Quarter: 2020Q2

REPORT INFORMATION
  Report Type: Spontaneous
  Country: IT (occurrence: IT)
  Receive Date: 20191213
  Receipt Date: 20200526
  Transmission Date: 20200713
  Serious: Yes (Other)
  Sender: FDA-Public Use
  Company Number: NVSC2019IT062817

PATIENT
  Age: 11 Year
  Sex: Male

DRUGS (1)
  1. RITALIN [Suspect]
     Active Substance: METHYLPHENIDATE HYDROCHLORIDE
     Indication: ATTENTION DEFICIT HYPERACTIVITY DISORDER
     Dosage: 30 MG, QD
     Route: 065
     Dates: start: 20180122, end: 20180322

REACTIONS (6)
  - Decreased appetite [Recovered/Resolved]
  - Onychophagia [Recovered/Resolved]
  - Neurotic disorder of childhood [Recovered/Resolved]
  - Anxiety [Recovered/Resolved]
  - Delusional perception [Recovered/Resolved]
  - Stereotypy [Recovered/Resolved]

NARRATIVE: CASE EVENT DATE: 20180222
